FAERS Safety Report 18514961 (Version 5)
Quarter: 2022Q1

REPORT INFORMATION
  Report Type: Spontaneous
  Country: US (occurrence: US)
  Receive Date: 20201118
  Receipt Date: 20220223
  Transmission Date: 20220424
  Serious: No
  Sender: FDA-Public Use
  Company Number: US-UCBSA-2020023846

PATIENT
  Age: 67 Year
  Sex: Female
  Weight: 117 kg

DRUGS (11)
  1. LEVETIRACETAM [Suspect]
     Active Substance: LEVETIRACETAM
     Indication: Status epilepticus
     Dosage: 1000 MILLIGRAM
  2. LEVETIRACETAM [Suspect]
     Active Substance: LEVETIRACETAM
     Indication: Off label use
  3. LACOSAMIDE [Suspect]
     Active Substance: LACOSAMIDE
     Indication: Status epilepticus
     Dosage: 300 MILLIGRAM
  4. LACOSAMIDE [Suspect]
     Active Substance: LACOSAMIDE
     Indication: Off label use
     Dosage: FOLLOWED BY A MAINTENANCE DOSE OF 150 MG EVERY 12 HOURS
  5. BRIVARACETAM [Suspect]
     Active Substance: BRIVARACETAM
     Indication: Status epilepticus
     Dosage: LOADING DOSE OF 200 MG
     Route: 042
  6. BRIVARACETAM [Suspect]
     Active Substance: BRIVARACETAM
     Indication: Off label use
     Dosage: 100 MILLIGRAM, 3X/DAY (TID)
     Route: 042
  7. FOSPHENYTOIN [Suspect]
     Active Substance: FOSPHENYTOIN
     Indication: Status epilepticus
     Dosage: UNK
  8. VALPROATE [Suspect]
     Active Substance: VALPROIC ACID
     Indication: Status epilepticus
     Dosage: 25 MILLIGRAM/KILOGRAM
  9. VALPROATE [Suspect]
     Active Substance: VALPROIC ACID
     Dosage: MAINTENANCE DOSE OF 500 MG EVERY 12 HOURS
  10. CLOBAZAM [Suspect]
     Active Substance: CLOBAZAM
     Indication: Status epilepticus
     Dosage: UNK
  11. LORAZEPAM [Suspect]
     Active Substance: LORAZEPAM
     Indication: Status epilepticus
     Dosage: ACCUMULATIVE DOSE OF 4 MG
     Route: 042

REACTIONS (2)
  - Multiple-drug resistance [Unknown]
  - Off label use [Unknown]
